FAERS Safety Report 16151979 (Version 1)
Quarter: 2019Q2

REPORT INFORMATION
  Report Type: Spontaneous
  Country: US (occurrence: US)
  Receive Date: 20190228
  Receipt Date: 20190228
  Transmission Date: 20190711
  Serious: No
  Sender: FDA-Public Use
  Company Number: None

PATIENT
  Age: 66 Year
  Sex: Female

DRUGS (1)
  1. PROLIA [Suspect]
     Active Substance: DENOSUMAB
     Dosage: ?          OTHER FREQUENCY:OTHER;?
     Route: 058
     Dates: start: 201808, end: 201902

REACTIONS (6)
  - Erythema [None]
  - Peripheral swelling [None]
  - Skin exfoliation [None]
  - Stevens-Johnson syndrome [None]
  - Dermatitis [None]
  - Urticaria [None]

NARRATIVE: CASE EVENT DATE: 20180822
